FAERS Safety Report 26123307 (Version 2)
Quarter: 2025Q4

REPORT INFORMATION
  Report Type: Spontaneous
  Country: JP (occurrence: JP)
  Receive Date: 20251204
  Receipt Date: 20251218
  Transmission Date: 20260118
  Serious: Yes (Death, Other)
  Sender: TAKEDA
  Company Number: JP-TAKEDA-2025TJP005671

PATIENT
  Age: 68 Year
  Sex: Female

DRUGS (3)
  1. FRUZAQLA [Suspect]
     Active Substance: FRUQUINTINIB
     Indication: Colon cancer metastatic
     Dosage: 5 MILLIGRAM
  2. FRUZAQLA [Suspect]
     Active Substance: FRUQUINTINIB
     Dosage: 4 MILLIGRAM
  3. REGORAFENIB [Concomitant]
     Active Substance: REGORAFENIB
     Dosage: UNK

REACTIONS (4)
  - Death [Fatal]
  - Colon cancer metastatic [Unknown]
  - Enterovesical fistula [Unknown]
  - Proteinuria [Recovering/Resolving]
